FAERS Safety Report 8835155 (Version 1)
Quarter: 2012Q4

REPORT INFORMATION
  Report Type: 
  Country: JP (occurrence: JP)
  Receive Date: 20121011
  Receipt Date: 20121011
  Transmission Date: 20130627
  Serious: Yes (Hospitalization)
  Sender: FDA-Public Use
  Company Number: JP-SANOFI-AVENTIS-2012SA072896

PATIENT
  Age: 81 Year
  Sex: Female

DRUGS (4)
  1. FUROSEMIDE [Suspect]
     Indication: DIURETIC THERAPY
     Route: 065
  2. GLIMEPIRIDE [Suspect]
     Indication: TYPE 2 DIABETES MELLITUS
     Route: 065
  3. SITAGLIPTIN PHOSPHATE [Concomitant]
     Dosage: added one week prior to her hospitalization
  4. VALSARTAN/HYDROCHLOROTHIAZIDE [Concomitant]
     Dosage: hydrochlorothiazide: 12.5 mg

REACTIONS (3)
  - Hypoglycaemia [Recovering/Resolving]
  - Loss of consciousness [Recovering/Resolving]
  - Hyponatraemia [Recovered/Resolved]
